FAERS Safety Report 5476441-0 (Version None)
Quarter: 2007Q3

REPORT INFORMATION
  Report Type: 
  Country: None (occurrence: None)
  Receive Date: 20070904
  Receipt Date: 20070723
  Transmission Date: 20080115
  Serious: No
  Sender: FDA-Public Use
  Company Number: PHEH2007US09540

PATIENT
  Sex: Female

DRUGS (4)
  1. ENABLEX [Suspect]
     Indication: URINARY INCONTINENCE
     Dates: start: 20070622
  2. VITAMIN D [Concomitant]
  3. CALCIUM [Concomitant]
  4. NAPROXEN [Concomitant]

REACTIONS (3)
  - ALOPECIA [None]
  - BALANCE DISORDER [None]
  - VISUAL ACUITY REDUCED [None]
